FAERS Safety Report 18778936 (Version 1)
Quarter: 2021Q1

REPORT INFORMATION
  Report Type: Spontaneous
  Country: DE (occurrence: DE)
  Receive Date: 20210124
  Receipt Date: 20210124
  Transmission Date: 20210419
  Serious: Yes (Hospitalization, Other)
  Sender: FDA-Public Use
  Company Number: DE-AUROBINDO-AUR-APL-2021-001635

PATIENT
  Sex: Female
  Weight: 100 kg

DRUGS (49)
  1. DULOXETINE. [Suspect]
     Active Substance: DULOXETINE
     Indication: PAIN
  2. ANAFRANIL [Concomitant]
     Active Substance: CLOMIPRAMINE HYDROCHLORIDE
     Indication: PAIN
     Dosage: UNK
     Route: 065
  3. ARCOXIA [Concomitant]
     Active Substance: ETORICOXIB
     Indication: PRODUCT USED FOR UNKNOWN INDICATION
     Dosage: 1X 90 , DAILY (IN THE MORNING)
     Route: 065
     Dates: start: 200903
  4. DUSPATAL [Concomitant]
     Active Substance: MEBEVERINE
     Indication: PRODUCT USED FOR UNKNOWN INDICATION
     Dosage: 1 DOSAGE FORM, DAILY
     Route: 065
  5. METAMIZOLE [Concomitant]
     Active Substance: METAMIZOLE
     Indication: PRODUCT USED FOR UNKNOWN INDICATION
     Dosage: 500 MILLIGRAM, ONCE A DAY
     Route: 065
  6. OMEPRAZOLE. [Concomitant]
     Active Substance: OMEPRAZOLE
     Indication: PRODUCT USED FOR UNKNOWN INDICATION
     Dosage: 40 MILLIGRAM, ONCE A DAY
     Route: 065
     Dates: start: 2010
  7. PANTOPRAZOLE [Concomitant]
     Active Substance: PANTOPRAZOLE
     Indication: PRODUCT USED FOR UNKNOWN INDICATION
     Dosage: 40 MILLIGRAM, ONCE A DAY
     Route: 065
  8. RANITIDINE HYDROCHLORIDE. [Suspect]
     Active Substance: RANITIDINE HYDROCHLORIDE
     Dosage: 300 MILLIGRAM, ONCE A DAY
     Route: 065
     Dates: start: 2015
  9. DIAZEPAM. [Concomitant]
     Active Substance: DIAZEPAM
     Indication: PRODUCT USED FOR UNKNOWN INDICATION
     Dosage: UNK
     Route: 065
  10. LUVASED [Concomitant]
     Active Substance: HERBALS\HOPS\VALERIAN
     Indication: PRODUCT USED FOR UNKNOWN INDICATION
     Dosage: UNK UNK, ONCE A DAY
     Route: 065
  11. REMIFEMIN PLUS [Concomitant]
     Active Substance: BLACK COHOSH\HERBALS\HYPERICUM PERFORATUM
     Indication: PRODUCT USED FOR UNKNOWN INDICATION
     Dosage: 1 DOSAGE FORM, TWO TIMES A DAY (2 DOSAGE FORM, ONCE A DAY)
     Route: 065
  12. DULOXETINE. [Suspect]
     Active Substance: DULOXETINE
     Indication: FIBROMYALGIA
     Dosage: 60 MILLIGRAM, ONCE A DAY (EVENING)
     Route: 065
  13. RANITIDINE HYDROCHLORIDE. [Suspect]
     Active Substance: RANITIDINE HYDROCHLORIDE
     Indication: PRODUCT USED FOR UNKNOWN INDICATION
     Dosage: UNK UNK, TID (1/2 X 300MG )
     Route: 065
  14. TILIDIN [Suspect]
     Active Substance: NALOXONE HYDROCHLORIDE\TILIDINE HYDROCHLORIDE
     Indication: PAIN
     Dosage: 4 MILLIGRAM, TWO TIMES A DAY (8 MILLIGRAM, ONCE A DAY)
     Route: 065
  15. ACC [Concomitant]
     Active Substance: ACETYLCYSTEINE
     Indication: PRODUCT USED FOR UNKNOWN INDICATION
     Dosage: UNK UNK, DAILY (IN THE MORNING)
     Route: 065
     Dates: start: 200903
  16. AMITRIPTYLINE [Concomitant]
     Active Substance: AMITRIPTYLINE
     Indication: PRODUCT USED FOR UNKNOWN INDICATION
     Dosage: 0.25 X 100, ONCE A DAY [IN?PATIENT STAY IN NOV 2015]
     Route: 065
  17. PREGABALIN. [Concomitant]
     Active Substance: PREGABALIN
     Dosage: 50 MILLIGRAM, ONCE A DAY
     Route: 065
  18. RAMIPRIL. [Concomitant]
     Active Substance: RAMIPRIL
     Indication: PRODUCT USED FOR UNKNOWN INDICATION
     Dosage: 2.5 MILLIGRAM, ONCE A DAY
     Route: 065
  19. DOXEPIN [Suspect]
     Active Substance: DOXEPIN
     Indication: PRODUCT USED FOR UNKNOWN INDICATION
     Dosage: UNK
     Route: 065
  20. LOTRICOMB [Concomitant]
     Active Substance: BETAMETHASONE DIPROPIONATE\CLOTRIMAZOLE
     Indication: PRODUCT USED FOR UNKNOWN INDICATION
     Dosage: UNK
     Route: 065
  21. MAPROTILINE [Concomitant]
     Active Substance: MAPROTILINE
     Indication: PAIN
     Dosage: UNK
     Route: 065
  22. OMEBETA [Concomitant]
     Indication: PRODUCT USED FOR UNKNOWN INDICATION
     Dosage: 20 MILLIGRAM, ONCE A DAY
     Route: 065
  23. PANTOPRAZOLE [Concomitant]
     Active Substance: PANTOPRAZOLE
     Dosage: 40 MILLIGRAM, ONCE A DAY
     Route: 065
     Dates: start: 2010
  24. TREVILOR RETARD [Concomitant]
     Active Substance: VENLAFAXINE HYDROCHLORIDE
     Indication: PRODUCT USED FOR UNKNOWN INDICATION
     Dosage: 37.5, UNK, ONCE A DAY
     Route: 065
  25. KATADOLON [Suspect]
     Active Substance: FLUPIRTINE
     Indication: PRODUCT USED FOR UNKNOWN INDICATION
     Dosage: UNK, DAILY
     Route: 065
  26. RANITIDIN 1 A PHARMA [Suspect]
     Active Substance: RANITIDINE HYDROCHLORIDE
     Dosage: 300 MILLIGRAM
     Route: 065
     Dates: start: 201510, end: 201703
  27. MYDOCALM [Concomitant]
     Indication: PRODUCT USED FOR UNKNOWN INDICATION
     Dosage: 1 DOSAGE FORM, ONCE A DAY
     Route: 065
  28. PREGABALIN. [Concomitant]
     Active Substance: PREGABALIN
     Indication: PRODUCT USED FOR UNKNOWN INDICATION
     Dosage: 8 MILLIGRAM
     Route: 065
  29. RANITIDIN [Concomitant]
     Active Substance: RANITIDINE HYDROCHLORIDE
     Indication: PRODUCT USED FOR UNKNOWN INDICATION
     Dosage: 300 MILLIGRAM
     Route: 065
     Dates: start: 201802
  30. RANITIDIN BASICS [Concomitant]
     Active Substance: RANITIDINE HYDROCHLORIDE
     Indication: PRODUCT USED FOR UNKNOWN INDICATION
     Dosage: 300 MILLIGRAM
     Route: 065
     Dates: start: 201703
  31. TRAMUNDIN [Concomitant]
     Active Substance: TRAMADOL HYDROCHLORIDE
     Indication: PRODUCT USED FOR UNKNOWN INDICATION
     Dosage: UNK UNK, TWO TIMES A DAY (PROLONGED FORMULATION)
     Route: 065
  32. MIRTAZAPINE. [Suspect]
     Active Substance: MIRTAZAPINE
     Indication: PRODUCT USED FOR UNKNOWN INDICATION
     Dosage: UNK
     Route: 065
  33. MIRTAZAPINE. [Suspect]
     Active Substance: MIRTAZAPINE
     Dosage: 15 MILLIGRAM, ONCE A DAY (EVENING)
     Route: 065
  34. ASPIRIN. [Concomitant]
     Active Substance: ASPIRIN
     Indication: PRODUCT USED FOR UNKNOWN INDICATION
     Dosage: 100 MILLIGRAM, ONCE A DAY
     Route: 065
  35. CALCI D [Concomitant]
     Indication: PRODUCT USED FOR UNKNOWN INDICATION
     Dosage: 1 DOSAGE FORM, ONCE A DAY
     Route: 065
  36. CELEBREX [Concomitant]
     Active Substance: CELECOXIB
     Dosage: 200 MILLIGRAM, 3 TIMES A DAY (600 MILLIGRAM, ONCE A DAY)
     Route: 065
     Dates: start: 20101013
  37. DICLOFENAC [Concomitant]
     Active Substance: DICLOFENAC
     Dosage: UNK
     Route: 030
     Dates: start: 19991005
  38. ESOMEPRAZOLE. [Concomitant]
     Active Substance: ESOMEPRAZOLE MAGNESIUM
     Indication: PRODUCT USED FOR UNKNOWN INDICATION
     Dosage: 20 MILLIGRAM, ONCE A DAY
     Route: 065
  39. MAGNESIUM [Concomitant]
     Active Substance: MAGNESIUM
     Indication: PRODUCT USED FOR UNKNOWN INDICATION
     Dosage: 300 UNK, ONCE A DAY
     Route: 065
  40. PANTOZOL [Concomitant]
     Active Substance: PANTOPRAZOLE SODIUM
     Indication: PRODUCT USED FOR UNKNOWN INDICATION
     Dosage: 20 MILLIGRAM, ONCE A DAY (MORNING)
     Route: 065
     Dates: start: 2009
  41. PANTOZOL [Concomitant]
     Active Substance: PANTOPRAZOLE SODIUM
     Dosage: 20 MILLIGRAM, ONCE A DAY
     Route: 065
     Dates: start: 2010
  42. PREGABALIN. [Concomitant]
     Active Substance: PREGABALIN
     Dosage: 4 MILLIGRAM
     Route: 065
  43. RANITIDIN 1 A PHARMA [Suspect]
     Active Substance: RANITIDINE HYDROCHLORIDE
     Dosage: 300 MILLIGRAM
     Route: 065
     Dates: start: 201710, end: 201802
  44. TETRAZEPAM [Concomitant]
     Active Substance: TETRAZEPAM
     Indication: PRODUCT USED FOR UNKNOWN INDICATION
     Dosage: 50 UNK, ONCE A DAY
     Route: 065
  45. VOLTAREN RESINAT [Concomitant]
     Active Substance: DICLOFENAC
     Indication: PRODUCT USED FOR UNKNOWN INDICATION
     Dosage: 75 MILLIGRAM, TWO TIMES A DAY (150 MILLIGRAM, ONCE A DAY) [AT ADMISSION TO HOSPITAL 13 OCT 2010]
     Route: 065
  46. RANITIDIN 1 A PHARMA [Suspect]
     Active Substance: RANITIDINE HYDROCHLORIDE
     Indication: PRODUCT USED FOR UNKNOWN INDICATION
     Dosage: 300 MILLIGRAM
     Route: 065
     Dates: start: 1999
  47. RANITIDIN 1 A PHARMA [Suspect]
     Active Substance: RANITIDINE HYDROCHLORIDE
     Dosage: 300 MILLIGRAM
     Route: 065
     Dates: start: 201806
  48. CELEBREX [Concomitant]
     Active Substance: CELECOXIB
     Indication: PRODUCT USED FOR UNKNOWN INDICATION
     Dosage: 200 MILLIGRAM, 3 TIMES A DAY (600 MILLIGRAM, ONCE A DAY)
     Route: 065
  49. DICLOFENAC [Concomitant]
     Active Substance: DICLOFENAC
     Indication: MYOSCLEROSIS
     Dosage: 75 MG (AS NEEDED 1?2 PER WEEK, TWICE (MORNING,EVENING)
     Route: 065

REACTIONS (127)
  - Humerus fracture [Recovering/Resolving]
  - Osteoarthritis [Unknown]
  - Weight increased [Unknown]
  - Abdominal pain upper [Unknown]
  - Abdominal pain [Recovered/Resolved]
  - Pathological fracture [Unknown]
  - Supraventricular tachycardia [Unknown]
  - Hypertension [Unknown]
  - Bursitis [Unknown]
  - Lymphoedema [Unknown]
  - Visual impairment [Not Recovered/Not Resolved]
  - Stress [Unknown]
  - Arthropathy [Unknown]
  - Dysplasia [Unknown]
  - Angina pectoris [Unknown]
  - Junctional ectopic tachycardia [Unknown]
  - Cataract [Unknown]
  - Micturition disorder [Unknown]
  - Osteopenia [Unknown]
  - Dyspnoea exertional [Unknown]
  - Migraine [Unknown]
  - Tachycardia [Unknown]
  - Erythema [Unknown]
  - Sinobronchitis [Unknown]
  - Suicidal ideation [Not Recovered/Not Resolved]
  - Scar [Unknown]
  - Eczema [Unknown]
  - Nocturia [Unknown]
  - Dyspepsia [Not Recovered/Not Resolved]
  - Restrictive pulmonary disease [Unknown]
  - Vitamin B12 decreased [Recovered/Resolved]
  - Tendon disorder [Unknown]
  - Somatic symptom disorder [Unknown]
  - Myofascial pain syndrome [Unknown]
  - Limb injury [Unknown]
  - Gastritis [Unknown]
  - Vomiting [Unknown]
  - Gastrointestinal infection [Unknown]
  - Dysaesthesia [Unknown]
  - Disturbance in attention [Unknown]
  - Arthralgia [Unknown]
  - Haematoma [Not Recovered/Not Resolved]
  - Dizziness [Unknown]
  - Nasal septum deviation [Unknown]
  - Fibromyalgia [Unknown]
  - Diverticulitis [Unknown]
  - Hot flush [Unknown]
  - Blood count abnormal [Recovered/Resolved]
  - Myalgia [Unknown]
  - Flatulence [Unknown]
  - Back pain [Unknown]
  - Anxiety disorder [Unknown]
  - Back pain [Unknown]
  - Constipation [Unknown]
  - Atrial tachycardia [Unknown]
  - Obesity [Unknown]
  - Tension headache [Unknown]
  - Bone density decreased [Unknown]
  - Paranasal sinus inflammation [Unknown]
  - Cartilage injury [Unknown]
  - Sciatica [Unknown]
  - Meniscus injury [Unknown]
  - Movement disorder [Recovering/Resolving]
  - Nail avulsion [Unknown]
  - Nasal turbinate hypertrophy [Unknown]
  - Foramen magnum stenosis [Unknown]
  - Multiple sclerosis [Unknown]
  - Sleep disorder [Unknown]
  - Pain [Unknown]
  - Mental disorder [Unknown]
  - Intervertebral disc protrusion [Unknown]
  - Depression [Unknown]
  - Cyst [Unknown]
  - Obstructive airways disorder [Unknown]
  - Spinal osteoarthritis [Unknown]
  - Hyperhidrosis [Unknown]
  - Hypersensitivity [Unknown]
  - Asthenia [Unknown]
  - Nausea [Not Recovered/Not Resolved]
  - Peripheral nerve lesion [Unknown]
  - Patellofemoral pain syndrome [Unknown]
  - Fall [Recovering/Resolving]
  - Cervical vertebral fracture [Unknown]
  - Abdominal pain upper [Recovered/Resolved]
  - Iliotibial band syndrome [Unknown]
  - Malaise [Unknown]
  - Dry mouth [Unknown]
  - Peripheral swelling [Recovered/Resolved]
  - Somnolence [Unknown]
  - Groin pain [Unknown]
  - Diarrhoea [Not Recovered/Not Resolved]
  - Osteoporosis postmenopausal [Unknown]
  - Gait disturbance [Unknown]
  - Gastrointestinal motility disorder [Unknown]
  - Blood iron decreased [Recovered/Resolved]
  - Device related infection [Unknown]
  - Osteosclerosis [Unknown]
  - Impaired healing [Recovering/Resolving]
  - Radial nerve palsy [Unknown]
  - Chondropathy [Unknown]
  - Rotator cuff syndrome [Recovered/Resolved]
  - Hypoaesthesia [Unknown]
  - Facial paresis [Unknown]
  - Sensation of foreign body [Unknown]
  - Muscle strain [Unknown]
  - Tremor [Unknown]
  - Vertebral lesion [Unknown]
  - Diastolic dysfunction [Unknown]
  - Vitamin D deficiency [Recovering/Resolving]
  - Joint effusion [Unknown]
  - Memory impairment [Unknown]
  - Femur fracture [Unknown]
  - Headache [Unknown]
  - Crohn^s disease [Unknown]
  - Injury [Unknown]
  - Alanine aminotransferase increased [Unknown]
  - Irritable bowel syndrome [Unknown]
  - Pain in extremity [Unknown]
  - Fatigue [Unknown]
  - Personality disorder [Unknown]
  - Hyperlipidaemia [Unknown]
  - Abdominal discomfort [Not Recovered/Not Resolved]
  - Defaecation disorder [Unknown]
  - Stupor [Unknown]
  - Facet joint syndrome [Unknown]
  - Joint stiffness [Unknown]
  - Uterine leiomyoma [Unknown]

NARRATIVE: CASE EVENT DATE: 2001
